FAERS Safety Report 17945260 (Version 1)
Quarter: 2020Q2

REPORT INFORMATION
  Report Type: Spontaneous
  Country: LV (occurrence: LV)
  Receive Date: 20200625
  Receipt Date: 20200625
  Transmission Date: 20200714
  Serious: Yes (Other)
  Sender: FDA-Public Use
  Company Number: LV-JNJFOC-20200632170

PATIENT
  Age: 67 Year
  Sex: Female

DRUGS (1)
  1. RIVAROXABAN [Suspect]
     Active Substance: RIVAROXABAN
     Indication: ATRIAL FIBRILLATION
     Dosage: 20 MG
     Route: 048
     Dates: start: 20200505, end: 20200605

REACTIONS (6)
  - Vein disorder [Unknown]
  - Vein rupture [Not Recovered/Not Resolved]
  - Skin discolouration [Unknown]
  - Haematoma [Unknown]
  - Venous haemorrhage [Unknown]
  - Thrombophlebitis superficial [Unknown]
